FAERS Safety Report 24000907 (Version 2)
Quarter: 2024Q4

REPORT INFORMATION
  Report Type: Spontaneous
  Country: US (occurrence: US)
  Receive Date: 20240621
  Receipt Date: 20241105
  Transmission Date: 20250114
  Serious: No
  Sender: EISAI
  Company Number: US-Eisai-EC-2024-165765

PATIENT
  Age: 81 Year
  Sex: Female

DRUGS (8)
  1. LEQEMBI [Suspect]
     Active Substance: LECANEMAB-IRMB
     Indication: Dementia Alzheimer^s type
     Dosage: DOSE UNKNOWN
     Route: 042
     Dates: start: 202402, end: 2024
  2. LEQEMBI [Suspect]
     Active Substance: LECANEMAB-IRMB
     Indication: Cognitive disorder
  3. PREDNISONE [Suspect]
     Active Substance: PREDNISONE
     Indication: Pruritus
     Dosage: DOSE AND FREQUENCY UNKNOWN
     Route: 065
     Dates: start: 202402, end: 2024
  4. PREDNISONE [Suspect]
     Active Substance: PREDNISONE
     Indication: Scab
  5. PREDNISONE [Suspect]
     Active Substance: PREDNISONE
     Indication: Influenza like illness
  6. PREDNISONE [Suspect]
     Active Substance: PREDNISONE
     Indication: Blood pressure increased
  7. PREDNISONE [Suspect]
     Active Substance: PREDNISONE
     Indication: Syncope
  8. PREDNISONE [Suspect]
     Active Substance: PREDNISONE
     Indication: Parosmia

REACTIONS (6)
  - Pruritus [Unknown]
  - Scab [Unknown]
  - Influenza like illness [Unknown]
  - Blood pressure increased [Unknown]
  - Syncope [Unknown]
  - Parosmia [Not Recovered/Not Resolved]

NARRATIVE: CASE EVENT DATE: 20240201
